FAERS Safety Report 23490562 (Version 1)
Quarter: 2024Q1

REPORT INFORMATION
  Report Type: Spontaneous
  Country: US (occurrence: None)
  Receive Date: 20240206
  Receipt Date: 20240206
  Transmission Date: 20240410
  Serious: No
  Sender: FDA-Public Use
  Company Number: US-ROCHE-3331907

PATIENT
  Sex: Female

DRUGS (19)
  1. XOLAIR [Suspect]
     Active Substance: OMALIZUMAB
     Indication: Asthma
     Dosage: STRENGTH: 150 MG ML
     Route: 058
     Dates: start: 20181114
  2. XOLAIR [Suspect]
     Active Substance: OMALIZUMAB
  3. XOLAIR [Suspect]
     Active Substance: OMALIZUMAB
  4. ADVAIR DISKUS [Concomitant]
     Active Substance: FLUTICASONE PROPIONATE\SALMETEROL XINAFOATE
     Dosage: 500 TO 50 MC
  5. ALBUTEROL [Concomitant]
     Active Substance: ALBUTEROL
  6. BUSPIRONE HCL [Concomitant]
     Active Substance: BUSPIRONE HYDROCHLORIDE
  7. CLONAZEPAM [Concomitant]
     Active Substance: CLONAZEPAM
  8. DEPAKOTE [Concomitant]
     Active Substance: DIVALPROEX SODIUM
  9. EPINEPHRINE [Concomitant]
     Active Substance: EPINEPHRINE
     Dosage: 0.3 MG/ 0.3
  10. GENTAMICIN SULFATE [Concomitant]
     Active Substance: GENTAMICIN SULFATE
  11. IPRATROPIUM [Concomitant]
     Active Substance: IPRATROPIUM
  12. PROZAC [Concomitant]
     Active Substance: FLUOXETINE HYDROCHLORIDE
  13. REMERON SOLTAB [Concomitant]
     Active Substance: MIRTAZAPINE
  14. SINGULAIR [Concomitant]
     Active Substance: MONTELUKAST SODIUM
  15. TOPIRAMATE [Concomitant]
     Active Substance: TOPIRAMATE
  16. VENTOLIN HFA [Concomitant]
     Active Substance: ALBUTEROL SULFATE
     Dosage: 108
  17. VESICARE [Concomitant]
     Active Substance: SOLIFENACIN SUCCINATE
  18. VRAYLAR [Concomitant]
     Active Substance: CARIPRAZINE
  19. VRAYLAR [Concomitant]
     Active Substance: CARIPRAZINE

REACTIONS (1)
  - Malaise [Not Recovered/Not Resolved]
